FAERS Safety Report 19968913 (Version 1)
Quarter: 2021Q4

REPORT INFORMATION
  Report Type: Spontaneous
  Country: FR (occurrence: FR)
  Receive Date: 20211019
  Receipt Date: 20211019
  Transmission Date: 20220303
  Serious: Yes (Other)
  Sender: FDA-Public Use
  Company Number: FR-BAXTER-2021BAX017111

PATIENT
  Age: 1 Month
  Sex: Male
  Weight: 6.8 kg

DRUGS (31)
  1. VANCOMYCIN [Suspect]
     Active Substance: VANCOMYCIN
     Indication: Staphylococcal sepsis
     Dosage: 345 MILLIGRAM, QD
     Route: 042
     Dates: start: 20210608, end: 20210615
  2. MAGNESIUM SULFATE [Suspect]
     Active Substance: MAGNESIUM SULFATE
     Indication: Product used for unknown indication
     Dosage: 0.5 MILLILITER, QD, 2ND BAG;FLOW RATE INCREASED IN INCREMENTS FROM 0.9ML/H TO 28.5ML/H
     Route: 042
     Dates: start: 20210612
  3. PHOCYTAN [Suspect]
     Active Substance: .ALPHA.-GLUCOSE-1-PHOSPHATE
     Indication: Product used for unknown indication
     Dosage: 18 MILLILITER, QD, 3RD BAG
     Route: 042
     Dates: start: 20210612
  4. CALCIUM GLUCONATE [Suspect]
     Active Substance: CALCIUM GLUCONATE
     Indication: Product used for unknown indication
     Dosage: 15 MILLILITER, QD, 2ND BAG;FLOW RATE INCREASED IN INCREMENTS FROM 0.9ML/H TO 28.5ML/H
     Route: 042
     Dates: start: 20210612
  5. PHOCYTAN [Suspect]
     Active Substance: .ALPHA.-GLUCOSE-1-PHOSPHATE
     Indication: Product used for unknown indication
     Dosage: 18 MILLILITER, QD, 2ND BAG;FLOW RATE INCREASED IN INCREMENTS FROM 0.9ML/H TO 28.5ML/H
     Route: 042
     Dates: start: 20210612
  6. WATER [Suspect]
     Active Substance: WATER
     Indication: Parenteral nutrition
     Dosage: 56 MILLILITER, QD, 1ST BAG
     Route: 042
     Dates: start: 20210611
  7. MAGNESIUM SULFATE [Suspect]
     Active Substance: MAGNESIUM SULFATE
     Indication: Product used for unknown indication
     Dosage: 0.5 MILLILITER, QD, 3RD BAG
     Route: 042
     Dates: start: 20210613
  8. CHOLECALCIFEROL [Suspect]
     Active Substance: CHOLECALCIFEROL
     Indication: Vitamin supplementation
     Dosage: 4 DROP, QD
     Route: 048
     Dates: start: 20210422
  9. DEXTROSE [Suspect]
     Active Substance: DEXTROSE
     Indication: Parenteral nutrition
     Dosage: 243 MILLILITER, QD, 1ST BAG, 2 ML/KG
     Route: 042
     Dates: start: 20210611
  10. WATER [Suspect]
     Active Substance: WATER
     Indication: Product used for unknown indication
     Dosage: 56 MILLILITER, QD, 3RD BAG
     Route: 042
     Dates: start: 20210613
  11. PRIMENE [Suspect]
     Active Substance: ALANINE\ARGININE\ASPARTIC ACID\CYSTEINE\GLUTAMIC ACID\GLYCINE\HISTIDINE\ISOLEUCINE\LEUCINE\LYSINE\ME
     Indication: Product used for unknown indication
     Dosage: 167 MILLILITER, QD, 2ND BAG;FLOW RATE INCREASED IN INCREMENTS FROM 0.9ML/H TO 28.5ML/H
     Route: 042
     Dates: start: 20210612
  12. PRIMENE [Suspect]
     Active Substance: ALANINE\ARGININE\ASPARTIC ACID\CYSTEINE\GLUTAMIC ACID\GLYCINE\HISTIDINE\ISOLEUCINE\LEUCINE\LYSINE\ME
     Dosage: 167 MILLIGRAM, 3RD BAG
     Route: 042
     Dates: start: 20210613
  13. OCTREOTIDE ACETATE [Suspect]
     Active Substance: OCTREOTIDE ACETATE
     Indication: Hyperinsulinism
     Dosage: 35 MICROGRAM/KILOGRAM, QD
     Route: 042
     Dates: start: 20210512
  14. SODIUM CHLORIDE [Suspect]
     Active Substance: SODIUM CHLORIDE
     Indication: Product used for unknown indication
     Dosage: 0.9 MILLILITER, QD, 3RD BAG
     Route: 042
     Dates: start: 20210612
  15. PRIMENE [Suspect]
     Active Substance: ALANINE\ARGININE\ASPARTIC ACID\CYSTEINE\GLUTAMIC ACID\GLYCINE\HISTIDINE\ISOLEUCINE\LEUCINE\LYSINE\ME
     Indication: Parenteral nutrition
     Dosage: 167 MILLILITER, QD, 1ST BAG
     Route: 042
     Dates: start: 20210611
  16. POTASSIUM CHLORIDE [Suspect]
     Active Substance: POTASSIUM CHLORIDE
     Indication: Parenteral nutrition
     Dosage: 1.2 MILLILITER, QD, 1ST BAG
     Route: 042
     Dates: start: 20210611
  17. SODIUM FEREDETATE [Suspect]
     Active Substance: SODIUM FEREDETATE
     Indication: Anaemia neonatal
     Dosage: 1 MILLILITER, QD
     Route: 048
     Dates: start: 20210528
  18. DEXTROSE [Suspect]
     Active Substance: DEXTROSE
     Indication: Product used for unknown indication
     Dosage: 243 MILLILITER, QD, 2ND BAG;FLOW RATE INCREASED IN INCREMENTS FROM 0.9ML/H TO 28.5ML/H, 2 ML/KG
     Route: 042
     Dates: start: 20210612
  19. DEXTROSE [Suspect]
     Active Substance: DEXTROSE
     Dosage: 243 MILLILITER, QD, 3RD BAG, 2 ML/KG
     Route: 042
     Dates: start: 20210613
  20. POTASSIUM CHLORIDE [Suspect]
     Active Substance: POTASSIUM CHLORIDE
     Indication: Product used for unknown indication
     Dosage: 1.2 MILLILITER, QD, 2ND BAG;FLOW RATE INCREASED IN INCREMENTS FROM 0.9ML/H TO 28.5ML/H
     Route: 042
     Dates: start: 20210612
  21. CALCIUM GLUCONATE [Suspect]
     Active Substance: CALCIUM GLUCONATE
     Indication: Product used for unknown indication
     Dosage: 15 MILLILITER, QD, 3RD BAG
     Route: 042
     Dates: start: 20210613
  22. PHOCYTAN [Suspect]
     Active Substance: .ALPHA.-GLUCOSE-1-PHOSPHATE
     Indication: Parenteral nutrition
     Dosage: 18 MILLILITER, QD, 1ST BAG
     Route: 042
     Dates: start: 20210611
  23. SODIUM CHLORIDE [Suspect]
     Active Substance: SODIUM CHLORIDE
     Indication: Parenteral nutrition
     Dosage: 0.9 MILLILITER, QD, 1ST BAG
     Route: 042
     Dates: start: 20210611
  24. WATER [Suspect]
     Active Substance: WATER
     Indication: Product used for unknown indication
     Dosage: 56 MILLILITER, QD, 2ND BAG; FLOW RATE INCREASED IN INCREMENTS FROM 0.9ML/H TO 28.5ML/H
     Route: 042
     Dates: start: 20210612
  25. MAGNESIUM SULFATE [Suspect]
     Active Substance: MAGNESIUM SULFATE
     Indication: Parenteral nutrition
     Dosage: 0.5 MILLILITER, QD, 1ST BAG
     Route: 042
     Dates: start: 20210611
  26. ZINC [Suspect]
     Active Substance: ZINC
     Indication: Parenteral nutrition
     Dosage: 0.4 MILLILITER, QD, 1ST BAG
     Route: 042
     Dates: start: 20210611
  27. SODIUM CHLORIDE [Suspect]
     Active Substance: SODIUM CHLORIDE
     Indication: Product used for unknown indication
     Dosage: 0.9 MILLILITER, QD, 2ND BAG;FLOW RATE INCREASED IN INCREMENTS FROM 0.9ML/H TO 28.5ML/H
     Route: 042
     Dates: start: 20210612
  28. ZINC [Suspect]
     Active Substance: ZINC
     Indication: Product used for unknown indication
     Dosage: 0.4 MILLILITER, QD, 3RD  BAG
     Route: 042
     Dates: start: 20210613
  29. CALCIUM GLUCONATE [Suspect]
     Active Substance: CALCIUM GLUCONATE
     Indication: Parenteral nutrition
     Dosage: 15 MILLILITER, QD, 1ST BAG
     Route: 042
     Dates: start: 20210611
  30. ZINC [Suspect]
     Active Substance: ZINC
     Indication: Product used for unknown indication
     Dosage: 0.4 MILLILITER, QD, 2ND BAG;FLOW RATE INCREASED IN INCREMENTS FROM 0.9ML/H TO 28.5ML/H
     Route: 042
     Dates: start: 20210612
  31. POTASSIUM CHLORIDE [Suspect]
     Active Substance: POTASSIUM CHLORIDE
     Indication: Product used for unknown indication
     Dosage: 1.2 MILLILITER, QD, 3RD BAG
     Route: 042
     Dates: start: 20210613

REACTIONS (2)
  - Hypoglycaemia [Recovered/Resolved]
  - Product preparation error [Unknown]

NARRATIVE: CASE EVENT DATE: 20210601
